FAERS Safety Report 19168063 (Version 2)
Quarter: 2021Q2

REPORT INFORMATION
  Report Type: Spontaneous
  Country: NZ (occurrence: NZ)
  Receive Date: 20210422
  Receipt Date: 20210513
  Transmission Date: 20210717
  Serious: Yes (Death)
  Sender: FDA-Public Use
  Company Number: NZ-MYLANLABS-2021M1023842

PATIENT
  Sex: Female
  Weight: 80 kg

DRUGS (9)
  1. CLOZARIL [Suspect]
     Active Substance: CLOZAPINE
     Indication: SCHIZOPHRENIA
     Dosage: UNK
     Route: 048
     Dates: start: 20201007
  2. PARACETAMOL [Concomitant]
     Active Substance: ACETAMINOPHEN
     Indication: ENDOMETRIAL DISORDER
     Dosage: 1 GRAM (1 G TDS)
     Route: 048
     Dates: start: 202008, end: 20210319
  3. FLUOXETINE [Concomitant]
     Active Substance: FLUOXETINE HYDROCHLORIDE
     Indication: ANXIETY
  4. FLUOXETINE [Concomitant]
     Active Substance: FLUOXETINE HYDROCHLORIDE
     Indication: DEPRESSION
     Dosage: 20 MILLIGRAM MANE
     Route: 048
     Dates: start: 202008, end: 20210319
  5. CLOZARIL [Suspect]
     Active Substance: CLOZAPINE
     Dosage: 150 MILLIGRAM
     Route: 048
     Dates: start: 20201006, end: 20210319
  6. LAXSOL [Concomitant]
     Active Substance: DOCUSATE SODIUM\SENNOSIDES A AND B
     Indication: LAXATIVE SUPPORTIVE CARE
     Dosage: 2 DOSAGE FORM, BID
     Route: 048
     Dates: start: 202006, end: 20210319
  7. FLUOXETINE [Concomitant]
     Active Substance: FLUOXETINE HYDROCHLORIDE
     Indication: OBSESSIVE-COMPULSIVE DISORDER
  8. ZOPICLONE [Concomitant]
     Active Substance: ZOPICLONE
     Indication: SLEEP DISORDER
     Dosage: 15 MILLIGRAM NOCTE
     Route: 048
     Dates: start: 202012, end: 20210319
  9. CODEINE [Concomitant]
     Active Substance: CODEINE
     Indication: ENDOMETRIAL DISORDER
     Dosage: 15 MILLIGRAM (15 MG TDS)
     Route: 048
     Dates: start: 202008, end: 20210319

REACTIONS (1)
  - Completed suicide [Fatal]
